FAERS Safety Report 11578071 (Version 1)
Quarter: 2015Q3

REPORT INFORMATION
  Report Type: Spontaneous
  Country: US (occurrence: US)
  Receive Date: 20150930
  Receipt Date: 20150930
  Transmission Date: 20151125
  Serious: No
  Sender: FDA-Public Use
  Company Number: US-BAYER-2015-431956

PATIENT
  Age: 57 Year
  Sex: Female
  Weight: 77.98 kg

DRUGS (9)
  1. LEXAPRO [Concomitant]
     Active Substance: ESCITALOPRAM OXALATE
     Indication: ANXIETY
     Dosage: 10 MG, QAM
  2. RESTASIS [Concomitant]
     Active Substance: CYCLOSPORINE
     Indication: SJOGREN^S SYNDROME
     Dosage: UNK DF, BID
  3. HYDROXYCHLOROQUINE [Concomitant]
     Active Substance: HYDROXYCHLOROQUINE
     Indication: SYSTEMIC LUPUS ERYTHEMATOSUS
     Dosage: 400 MG, QD
     Dates: start: 20150824
  4. PLAQUENIL [Concomitant]
     Active Substance: HYDROXYCHLOROQUINE SULFATE
     Dosage: UNK
     Dates: start: 201209
  5. PILOCARPINE. [Concomitant]
     Active Substance: PILOCARPINE
     Indication: SJOGREN^S SYNDROME
     Dosage: UNK DF, TID
  6. HYDROXYCHLOROQUINE [Concomitant]
     Active Substance: HYDROXYCHLOROQUINE
     Indication: SYSTEMIC LUPUS ERYTHEMATOSUS
     Dosage: 400 MG, QD
     Dates: start: 201503, end: 201503
  7. MIRALAX [Suspect]
     Active Substance: POLYETHYLENE GLYCOL 3350
     Indication: COLONOSCOPY
     Dosage: UNK DF, UNK
     Dates: start: 2010
  8. TRAZODONE [Concomitant]
     Active Substance: TRAZODONE HYDROCHLORIDE
     Indication: ANXIETY
     Dosage: 50 MG, QHS
  9. METFORMIN [Concomitant]
     Active Substance: METFORMIN HYDROCHLORIDE
     Indication: INSULIN RESISTANCE
     Dosage: 1000 MG, QD

REACTIONS (4)
  - Vomiting [None]
  - Product use issue [None]
  - Migraine [None]
  - Diarrhoea [Not Recovered/Not Resolved]

NARRATIVE: CASE EVENT DATE: 2010
